FAERS Safety Report 24750812 (Version 1)
Quarter: 2024Q4

REPORT INFORMATION
  Report Type: Spontaneous
  Country: JP (occurrence: JP)
  Receive Date: 20241219
  Receipt Date: 20241219
  Transmission Date: 20250115
  Serious: Yes (Other)
  Sender: SANOFI AVENTIS
  Company Number: JP-SAKK-02342449

PATIENT
  Age: 16 Year
  Sex: Male

DRUGS (1)
  1. DUPIXENT [Suspect]
     Active Substance: DUPILUMAB
     Indication: Dermatitis atopic
     Dosage: UNK
     Route: 058
     Dates: start: 20241130

REACTIONS (5)
  - Depressed level of consciousness [Unknown]
  - Pallor [Unknown]
  - Eye disorder [Unknown]
  - Dizziness [Unknown]
  - Injection site oedema [Unknown]

NARRATIVE: CASE EVENT DATE: 20241130
